FAERS Safety Report 17196025 (Version 2)
Quarter: 2020Q4

REPORT INFORMATION
  Report Type: Report from Study
  Country: GB (occurrence: GB)
  Receive Date: 20191224
  Receipt Date: 20201007
  Transmission Date: 20210113
  Serious: Yes (Hospitalization)
  Sender: FDA-Public Use
  Company Number: NVSC2019GB001785

PATIENT
  Age: 62 Year
  Sex: Male
  Weight: 62 kg

DRUGS (4)
  1. COSENTYX [Suspect]
     Active Substance: SECUKINUMAB
     Indication: ANKYLOSING SPONDYLITIS
     Dosage: 150 MG, QW (LOADING DOSES AT WEEKS 0,1,2,3,4 THEN MONTHLY MAINTENANCE THEREAFTER)
     Route: 058
     Dates: start: 20190619
  2. COSENTYX [Suspect]
     Active Substance: SECUKINUMAB
     Dosage: 150 MG, QMO
     Route: 058
  3. PERINDOPRIL [Concomitant]
     Active Substance: PERINDOPRIL
     Indication: PRODUCT USED FOR UNKNOWN INDICATION
     Dosage: UNK
     Route: 065
  4. OMEPRAZOLE. [Concomitant]
     Active Substance: OMEPRAZOLE
     Indication: PRODUCT USED FOR UNKNOWN INDICATION
     Dosage: UNK
     Route: 065

REACTIONS (8)
  - Rib fracture [Not Recovered/Not Resolved]
  - Pain [Unknown]
  - Feeling cold [Unknown]
  - Nasopharyngitis [Unknown]
  - Neck injury [Not Recovered/Not Resolved]
  - Wrist fracture [Not Recovered/Not Resolved]
  - Road traffic accident [Not Recovered/Not Resolved]
  - Rhinorrhoea [Unknown]

NARRATIVE: CASE EVENT DATE: 20190920
